FAERS Safety Report 8115355-4 (Version None)
Quarter: 2012Q1

REPORT INFORMATION
  Report Type: 
  Country: None (occurrence: None)
  Receive Date: 20120206
  Receipt Date: 20120206
  Transmission Date: 20120608
  Serious: No
  Sender: FDA-Public Use
  Company Number: None

PATIENT
  Sex: Female
  Weight: 58.967 kg

DRUGS (1)
  1. LORAZEPAM [Suspect]
     Indication: ANXIETY
     Dosage: 0.5 MG
     Route: 048
     Dates: start: 20100212, end: 20111107

REACTIONS (17)
  - DRUG WITHDRAWAL SYNDROME [None]
  - FEELING ABNORMAL [None]
  - DIZZINESS [None]
  - DRUG DEPENDENCE [None]
  - QUALITY OF LIFE DECREASED [None]
  - FEAR [None]
  - LETHARGY [None]
  - HYPERACUSIS [None]
  - DECREASED APPETITE [None]
  - TINNITUS [None]
  - PHOTOPHOBIA [None]
  - FATIGUE [None]
  - DRUG TOLERANCE [None]
  - WEIGHT DECREASED [None]
  - TACHYCARDIA [None]
  - IMPAIRED WORK ABILITY [None]
  - VISUAL IMPAIRMENT [None]
